FAERS Safety Report 23405431 (Version 1)
Quarter: 2024Q1

REPORT INFORMATION
  Report Type: Spontaneous
  Country: CH (occurrence: None)
  Receive Date: 20240116
  Receipt Date: 20240116
  Transmission Date: 20240409
  Serious: Yes (Hospitalization)
  Sender: FDA-Public Use
  Company Number: 2024A004765

PATIENT
  Age: 90 Year
  Sex: Male
  Weight: 69.4 kg

DRUGS (12)
  1. CALQUENCE [Suspect]
     Active Substance: ACALABRUTINIB
     Indication: Lymphocytic leukaemia
     Dosage: INTRODUCED AFTER JUNE 2023 (EXACT DATE NOT REPORTED)
     Route: 048
     Dates: end: 20231116
  2. ELIQUIS [Concomitant]
     Active Substance: APIXABAN
     Indication: Ischaemic stroke
     Dates: start: 202304
  3. TORSEMIDE [Concomitant]
     Active Substance: TORSEMIDE
  4. BISOPROLOL [Concomitant]
     Active Substance: BISOPROLOL\BISOPROLOL FUMARATE
  5. ENALAPRIL [Concomitant]
     Active Substance: ENALAPRIL
  6. ROSUVASTATIN [Concomitant]
     Active Substance: ROSUVASTATIN
  7. PREGABALIN [Concomitant]
     Active Substance: PREGABALIN
  8. PANTOPRAZOLE [Concomitant]
     Active Substance: PANTOPRAZOLE
  9. FOLIC ACID [Concomitant]
     Active Substance: FOLIC ACID
  10. VALTREX [Concomitant]
     Active Substance: VALACYCLOVIR HYDROCHLORIDE
  11. BACTRIM [Concomitant]
     Active Substance: SULFAMETHOXAZOLE\TRIMETHOPRIM
     Dosage: 3X/SEMAINE
  12. ALLOPURINOL [Concomitant]
     Active Substance: ALLOPURINOL

REACTIONS (1)
  - Ischaemic stroke [Recovering/Resolving]

NARRATIVE: CASE EVENT DATE: 20231108
